FAERS Safety Report 10086099 (Version 1)
Quarter: 2014Q2

REPORT INFORMATION
  Report Type: Spontaneous
  Country: GB (occurrence: None)
  Receive Date: 20140416
  Receipt Date: 20140416
  Transmission Date: 20141212
  Serious: Yes (Other)
  Sender: FDA-Public Use
  Company Number: AUR-APL-2014-04245

PATIENT
  Age: 52 Year
  Sex: Female

DRUGS (1)
  1. FLUCONAZOLE (FLUCONAZOLE) [Suspect]
     Indication: PRODUCT USED FOR UNKNOWN INDICATION
     Dosage: 42.8571 MG (150 MG, 2 IN 1 WK), ORAL
     Route: 048
     Dates: start: 20140210, end: 20140224

REACTIONS (1)
  - Bone pain [None]
